FAERS Safety Report 8426253-0 (Version None)
Quarter: 2012Q2

REPORT INFORMATION
  Report Type: 
  Country: None (occurrence: None)
  Receive Date: 20120323
  Receipt Date: 20110706
  Transmission Date: 20120825
  Serious: Yes (Hospitalization)
  Sender: FDA-Public Use
  Company Number: 163-21880-11043219

PATIENT
  Age: 54 Year
  Sex: Female
  Weight: 68.0396 kg

DRUGS (12)
  1. FOLIC ACID [Concomitant]
  2. ACYCLOVIR [Concomitant]
  3. NORETHINDRON (NORETHISTERONE) [Concomitant]
  4. PRAVASTATIN [Concomitant]
  5. ZOMETA [Concomitant]
  6. ENALAPRIL MALEATE [Concomitant]
  7. REVLIMID [Suspect]
     Indication: MULTIPLE MYELOMA
     Dosage: 10 MG, 1 IN 1 D, PO ; 15 MG, X 21 DAYS, PO
     Route: 048
     Dates: start: 20100901
  8. REVLIMID [Suspect]
     Indication: MULTIPLE MYELOMA
     Dosage: 10 MG, 1 IN 1 D, PO ; 15 MG, X 21 DAYS, PO
     Route: 048
     Dates: start: 20100515
  9. ROCEPHIN [Suspect]
     Indication: BACTERAEMIA
     Dosage: IV
     Route: 042
  10. GLIPIZIDE [Concomitant]
  11. METFFORMIN HYDROCHLORIDE [Concomitant]
  12. NEUPOGEN [Concomitant]

REACTIONS (2)
  - PNEUMOCOCCAL SEPSIS [None]
  - WHITE BLOOD CELL COUNT DECREASED [None]
